FAERS Safety Report 8252429-1 (Version None)
Quarter: 2012Q2

REPORT INFORMATION
  Report Type: 
  Country: None (occurrence: None)
  Receive Date: 20120402
  Receipt Date: 20110628
  Transmission Date: 20120825
  Serious: No
  Sender: FDA-Public Use
  Company Number: US-ABBOTT-11P-163-0835868-00

PATIENT
  Sex: Male
  Weight: 91.708 kg

DRUGS (4)
  1. MOBIC [Concomitant]
     Indication: ARTHRALGIA
  2. LISINOPRIL [Concomitant]
     Indication: HYPERTENSION
  3. ANDROGEL [Suspect]
     Indication: BLOOD TESTOSTERONE DECREASED
     Dosage: 5 PUMPS PER DAY
     Dates: start: 20010101
  4. ANDROGEL [Suspect]
     Dosage: 2 PUMPS PER DAY

REACTIONS (4)
  - PROSTATITIS [None]
  - PRODUCT QUALITY ISSUE [None]
  - FEELING ABNORMAL [None]
  - INSTILLATION SITE ABNORMAL SENSATION [None]
